FAERS Safety Report 14849843 (Version 2)
Quarter: 2018Q2

REPORT INFORMATION
  Report Type: Spontaneous
  Country: US (occurrence: US)
  Receive Date: 20180504
  Receipt Date: 20180529
  Transmission Date: 20180711
  Serious: Yes (Hospitalization)
  Sender: FDA-Public Use
  Company Number: US-ACTELION-A-US2017-163008

PATIENT
  Age: 53 Year
  Sex: Male

DRUGS (5)
  1. ADEMPAS [Suspect]
     Active Substance: RIOCIGUAT
     Indication: PRODUCT USED FOR UNKNOWN INDICATION
     Dosage: 1 MG, TID
     Route: 065
     Dates: start: 20171005
  2. OPSUMIT [Suspect]
     Active Substance: MACITENTAN
     Indication: PULMONARY ARTERIAL HYPERTENSION
     Dosage: 10 MG, QD
     Route: 048
     Dates: start: 20170919
  3. BUMETANIDE. [Concomitant]
     Active Substance: BUMETANIDE
  4. ADEMPAS [Suspect]
     Active Substance: RIOCIGUAT
     Dosage: 2.5 MG, TID
     Route: 065
     Dates: start: 20180106
  5. FUROSEMIDE. [Concomitant]
     Active Substance: FUROSEMIDE
     Dosage: 20 MG, UNK
     Dates: start: 20171030

REACTIONS (8)
  - Dyspnoea [Recovering/Resolving]
  - Pyrexia [Recovered/Resolved]
  - Pneumonia [Unknown]
  - Condition aggravated [Recovered/Resolved]
  - Dizziness [Recovered/Resolved]
  - Fluid retention [Recovered/Resolved]
  - Rash [Recovering/Resolving]
  - Oedema peripheral [Recovered/Resolved]

NARRATIVE: CASE EVENT DATE: 20171003
